FAERS Safety Report 16266733 (Version 2)
Quarter: 2019Q3

REPORT INFORMATION
  Report Type: Spontaneous
  Country: FR (occurrence: FR)
  Receive Date: 20190502
  Receipt Date: 20190923
  Transmission Date: 20191004
  Serious: Yes (Hospitalization, Other)
  Sender: FDA-Public Use
  Company Number: FR-PFIZER INC-2019180294

PATIENT
  Age: 62 Year
  Sex: Female
  Weight: 74.7 kg

DRUGS (15)
  1. OXYNORM [Concomitant]
     Active Substance: OXYCODONE HYDROCHLORIDE
     Dosage: UNK
  2. KIDROLASE [Suspect]
     Active Substance: ASPARAGINASE
     Indication: ACUTE LYMPHOCYTIC LEUKAEMIA
     Dosage: 18800 IU, 1X/DAY
     Route: 042
     Dates: start: 20190218, end: 20190220
  3. LEVOTHYROX [Concomitant]
     Active Substance: LEVOTHYROXINE
     Dosage: UNK
  4. VINCRISTINE HOSPIRA [Suspect]
     Active Substance: VINCRISTINE
     Indication: ACUTE LYMPHOCYTIC LEUKAEMIA
     Dosage: 2 MG, 1X/DAY
     Route: 042
     Dates: start: 20190225, end: 20190225
  5. AMBISOME [Concomitant]
     Active Substance: AMPHOTERICIN B
     Dosage: UNK
  6. DEXPANTHENOL. [Concomitant]
     Active Substance: DEXPANTHENOL
     Dosage: UNK
  7. HEPARINE CHOAY [Suspect]
     Active Substance: HEPARIN SODIUM
     Indication: THROMBOSIS PROPHYLAXIS
     Dosage: 8000 IU, 1X/DAY
     Route: 042
     Dates: start: 20190219, end: 20190301
  8. ENDOXAN [Suspect]
     Active Substance: CYCLOPHOSPHAMIDE
     Indication: ACUTE LYMPHOCYTIC LEUKAEMIA
     Dosage: 1420 MG, 1X/DAY
     Route: 042
     Dates: start: 20190225, end: 20190225
  9. ANTITHROMBIN III [Suspect]
     Active Substance: ANTITHROMBIN III HUMAN
     Indication: THROMBOSIS PROPHYLAXIS
     Dosage: 2000 IU, 1X/DAY
     Route: 042
     Dates: start: 20190225, end: 20190225
  10. KIDROLASE [Suspect]
     Active Substance: ASPARAGINASE
     Dosage: 18800 IU, 1X/DAY
     Route: 042
     Dates: start: 20190218, end: 20190220
  11. PIPERACILLINE / TAZOBACTAM MYLAN [Suspect]
     Active Substance: PIPERACILLIN SODIUM\TAZOBACTAM SODIUM
     Indication: BACTERAEMIA
     Dosage: 16 G, 1X/DAY (EVERY 24 HOURS)
     Route: 042
     Dates: start: 20190220, end: 20190301
  12. VANCOMYCINE [Concomitant]
     Active Substance: VANCOMYCIN
     Dosage: UNK
  13. ANTITHROMBIN III [Suspect]
     Active Substance: ANTITHROMBIN III HUMAN
     Dosage: 2000 IU, 1X/DAY
     Route: 042
     Dates: start: 20190225, end: 20190225
  14. ZARZIO [Suspect]
     Active Substance: FILGRASTIM
     Indication: IMMUNODEFICIENCY
     Dosage: 1 DF, 1X/DAY
     Route: 042
     Dates: start: 20190226, end: 20190307
  15. ULTRAPROCT [Concomitant]
     Dosage: UNK

REACTIONS (7)
  - Gamma-glutamyltransferase increased [Unknown]
  - Blood alkaline phosphatase increased [Unknown]
  - Dehydration [Recovered/Resolved]
  - Blood glucose increased [Unknown]
  - Alanine aminotransferase increased [Unknown]
  - Cholestasis [Recovering/Resolving]
  - Confusional state [Recovered/Resolved]

NARRATIVE: CASE EVENT DATE: 20190301
